FAERS Safety Report 4467100-1 (Version None)
Quarter: 2004Q4

REPORT INFORMATION
  Report Type: 
  Country: None (occurrence: None)
  Receive Date: 20041004
  Receipt Date: 20040921
  Transmission Date: 20050328
  Serious: Yes (Other)
  Sender: FDA-Public Use
  Company Number: 2004069201

PATIENT
  Age: 83 Year
  Sex: Male
  Weight: 80.2867 kg

DRUGS (1)
  1. LIPITOR [Suspect]
     Indication: BLOOD CHOLESTEROL
     Dosage: 20 MG (20 MG, 1 IN 1 D), ORAL
     Route: 048
     Dates: start: 20020110

REACTIONS (3)
  - ANGIOPLASTY [None]
  - BACK PAIN [None]
  - MYALGIA [None]
